FAERS Safety Report 6181039-5 (Version None)
Quarter: 2009Q2

REPORT INFORMATION
  Report Type: 
  Country: None (occurrence: None)
  Receive Date: 20090501
  Receipt Date: 20090422
  Transmission Date: 20091009
  Serious: Yes (Hospitalization)
  Sender: FDA-Public Use
  Company Number: GXKR2009PL04957

PATIENT
  Age: 75 Year
  Sex: Male

DRUGS (9)
  1. AMIODARONE HCL [Suspect]
     Dosage: 200 MG, PER 24 HR
  2. CARVEDILOL [Suspect]
     Dosage: 6.25 MG, PER 24 HR
  3. FUROSEMIDE [Concomitant]
  4. ALLOPURINOL [Concomitant]
  5. ATORVASTATIN CALCIUM [Concomitant]
  6. CILAZAPRIL (CILAZAPRIL) [Concomitant]
  7. AMLODIPINE [Concomitant]
  8. ASPIRIN [Concomitant]
  9. NEORECORMON ^ROCHE^ (EPOETIN BETA) [Concomitant]

REACTIONS (8)
  - BLOOD PRESSURE INCREASED [None]
  - BRADYCARDIA [None]
  - CARDIAC ABLATION [None]
  - DISEASE PROGRESSION [None]
  - HAEMODIALYSIS [None]
  - RENAL FAILURE CHRONIC [None]
  - SUPRAVENTRICULAR TACHYCARDIA [None]
  - TACHYCARDIA [None]
